FAERS Safety Report 5712938-3 (Version None)
Quarter: 2008Q2

REPORT INFORMATION
  Report Type: 
  Country: None (occurrence: None)
  Receive Date: 20080422
  Receipt Date: 20080407
  Transmission Date: 20081010
  Serious: Yes (Death, Other)
  Sender: FDA-Public Use
  Company Number: US-ELI_LILLY_AND_COMPANY-US200802004248

PATIENT
  Age: 30 Year
  Sex: Male
  Weight: 124.72 kg

DRUGS (3)
  1. PROZAC [Suspect]
     Dosage: 80 MG, UNK
  2. MORPHINE [Concomitant]
  3. BUSPAR [Concomitant]

REACTIONS (8)
  - ARRHYTHMIA [None]
  - CARDIAC ARREST [None]
  - CARDIAC FAILURE CONGESTIVE [None]
  - CARDIOTOXICITY [None]
  - DRUG TOXICITY [None]
  - OVERDOSE [None]
  - PULMONARY CONGESTION [None]
  - PULMONARY OEDEMA [None]
